FAERS Safety Report 7016681-2 (Version None)
Quarter: 2010Q3

REPORT INFORMATION
  Report Type: 
  Country: None (occurrence: None)
  Receive Date: 20100927
  Receipt Date: 20090112
  Transmission Date: 20110219
  Serious: Yes (Death, Hospitalization, Other)
  Sender: FDA-Public Use
  Company Number: PHHY2009US66402

PATIENT
  Sex: Female
  Weight: 58.6 kg

DRUGS (8)
  1. EXJADE [Suspect]
     Dosage: 1000 MG DAILY
     Route: 048
     Dates: start: 20080226
  2. DIGOXIN [Concomitant]
     Dosage: 125 MCG DAILY
     Route: 048
  3. LEVOTHYROXINE SODIUM [Concomitant]
     Dosage: 112 UG, QD
     Route: 048
  4. CARVEDILOL [Concomitant]
     Dosage: 6.25 MG, BID
     Route: 048
  5. HYDROXYUREA [Concomitant]
     Dosage: 500 MG, QD
     Route: 048
  6. ALLOPURINOL [Concomitant]
     Dosage: 100 MG, BID
     Route: 048
  7. FUROSEMIDE [Concomitant]
     Dosage: 40 MG, QD
     Route: 048
  8. DEFERASIROX [Concomitant]
     Dosage: 1000 MG, QD
     Route: 048

REACTIONS (5)
  - CARDIAC FAILURE CONGESTIVE [None]
  - DEATH [None]
  - LIVER INJURY [None]
  - RENAL IMPAIRMENT [None]
  - SERUM FERRITIN INCREASED [None]
